FAERS Safety Report 18624394 (Version 1)
Quarter: 2020Q4

REPORT INFORMATION
  Report Type: Spontaneous
  Country: FR (occurrence: FR)
  Receive Date: 20201216
  Receipt Date: 20201216
  Transmission Date: 20210114
  Serious: Yes (Other)
  Sender: FDA-Public Use
  Company Number: FR-AMERICAN REGENT INC-2020002661

PATIENT
  Age: 1 Month
  Sex: Male

DRUGS (1)
  1. VENOFER [Suspect]
     Active Substance: IRON SUCROSE
     Indication: ANAEMIA
     Dosage: 1 UNKNOWN (1 UNKNOWN, 1 IN 1 TOTAL)
     Dates: start: 20201120, end: 20201120

REACTIONS (2)
  - Administration site oedema [Unknown]
  - Extravasation [Recovered/Resolved]

NARRATIVE: CASE EVENT DATE: 20201120
